FAERS Safety Report 11003147 (Version 1)
Quarter: 2015Q2

REPORT INFORMATION
  Report Type: Not Available
  Country: US (occurrence: US)
  Receive Date: 20150409
  Receipt Date: 20150409
  Transmission Date: 20150821
  Serious: No
  Sender: FDA-Public Use
  Company Number: US-LUPIN PHARMACEUTICALS INC.-2015-00391

PATIENT
  Sex: Female

DRUGS (1)
  1. CEFDINIR CAPSULES USP 300 MG [Suspect]
     Active Substance: CEFDINIR
     Indication: SINUSITIS
     Route: 065

REACTIONS (2)
  - Incorrect dosage administered [Unknown]
  - Malaise [Unknown]
